FAERS Safety Report 4282235-4 (Version None)
Quarter: 2004Q1

REPORT INFORMATION
  Report Type: 
  Country: None (occurrence: None)
  Receive Date: 20040107
  Receipt Date: 20031117
  Transmission Date: 20041129
  Serious: Yes (Life-Threatening)
  Sender: FDA-Public Use
  Company Number: 233973

PATIENT
  Age: 75 Year
  Sex: Male
  Weight: 97.5 kg

DRUGS (3)
  1. NOVOLOG [Suspect]
     Indication: INSULIN-REQUIRING TYPE II DIABETES MELLITUS
     Dosage: 5 IU, TID, SUBCUTANEOUS
     Route: 058
     Dates: start: 20031103
  2. LANTUS [Concomitant]
  3. HEART MEDICATION [Concomitant]

REACTIONS (2)
  - HYPOGLYCAEMIC COMA [None]
  - MEDICATION ERROR [None]
